FAERS Safety Report 12563699 (Version 1)
Quarter: 2016Q3

REPORT INFORMATION
  Report Type: Spontaneous
  Country: CN (occurrence: CN)
  Receive Date: 20160716
  Receipt Date: 20160716
  Transmission Date: 20161109
  Serious: Yes (Other)
  Sender: FDA-Public Use
  Company Number: CN-JNJFOC-20160702506

PATIENT
  Age: 6 Year
  Sex: Male
  Weight: 23 kg

DRUGS (2)
  1. MOTRIN [Suspect]
     Active Substance: IBUPROFEN
     Indication: PYREXIA
     Route: 042
     Dates: start: 20160229, end: 20160229
  2. MOTRIN [Suspect]
     Active Substance: IBUPROFEN
     Indication: PNEUMONIA
     Route: 042
     Dates: start: 20160229, end: 20160229

REACTIONS (4)
  - Asthma [Recovering/Resolving]
  - Product use issue [Recovering/Resolving]
  - Incorrect route of drug administration [Recovering/Resolving]
  - Off label use [Recovering/Resolving]

NARRATIVE: CASE EVENT DATE: 20160229
